FAERS Safety Report 5772989-X (Version None)
Quarter: 2008Q2

REPORT INFORMATION
  Report Type: 
  Country: None (occurrence: None)
  Receive Date: 20080613
  Receipt Date: 20080602
  Transmission Date: 20081010
  Serious: Yes (Other)
  Sender: FDA-Public Use
  Company Number: US-PFIZER INC-2008047630

PATIENT
  Sex: Female

DRUGS (1)
  1. CHANTIX [Suspect]

REACTIONS (5)
  - ADVERSE EVENT [None]
  - ANGINA PECTORIS [None]
  - GENERALISED OEDEMA [None]
  - PAIN [None]
  - UNEVALUABLE EVENT [None]
